FAERS Safety Report 4710201-0 (Version None)
Quarter: 2005Q3

REPORT INFORMATION
  Report Type: 
  Country: None (occurrence: None)
  Receive Date: 20050709
  Receipt Date: 20050311
  Transmission Date: 20060218
  Serious: Yes (Hospitalization)
  Sender: FDA-Public Use
  Company Number: US-MERCK-0503USA02628

PATIENT
  Age: 57 Year
  Sex: Female
  Weight: 48 kg

DRUGS (7)
  1. VIOXX [Suspect]
     Indication: BACK PAIN
     Route: 048
     Dates: start: 19990501, end: 20041001
  2. VIOXX [Suspect]
     Route: 048
     Dates: start: 19990501, end: 20041001
  3. VIOXX [Suspect]
     Indication: NECK PAIN
     Route: 048
     Dates: start: 19990501, end: 20041001
  4. VIOXX [Suspect]
     Route: 048
     Dates: start: 19990501, end: 20041001
  5. LORTAB [Concomitant]
     Route: 065
     Dates: start: 20020101
  6. TYLENOL [Concomitant]
     Route: 065
  7. ZOCOR [Concomitant]
     Route: 065
     Dates: start: 20020101

REACTIONS (5)
  - BLOOD CHOLESTEROL INCREASED [None]
  - CHEST PAIN [None]
  - DYSPNOEA [None]
  - HYPERTENSION [None]
  - MYOCARDIAL INFARCTION [None]
